FAERS Safety Report 15396847 (Version 2)
Quarter: 2018Q3

REPORT INFORMATION
  Report Type: Spontaneous
  Country: US (occurrence: US)
  Receive Date: 20180918
  Receipt Date: 20180925
  Transmission Date: 20181010
  Serious: No
  Sender: FDA-Public Use
  Company Number: US-PFIZER INC-2018371063

PATIENT
  Age: 72 Year
  Sex: Male

DRUGS (1)
  1. ALDACTONE [Suspect]
     Active Substance: SPIRONOLACTONE
     Indication: HYPERALDOSTERONISM
     Dosage: UNK

REACTIONS (7)
  - Ocular discomfort [Unknown]
  - Ear discomfort [Unknown]
  - Asthenia [Unknown]
  - Malaise [Unknown]
  - Abdominal discomfort [Unknown]
  - Dizziness [Unknown]
  - Hypoaesthesia [Unknown]
